FAERS Safety Report 9418661 (Version 4)
Quarter: 2013Q4

REPORT INFORMATION
  Report Type: Spontaneous
  Country: US (occurrence: US)
  Receive Date: 20130725
  Receipt Date: 20131118
  Transmission Date: 20140711
  Serious: Yes (Hospitalization, Other)
  Sender: FDA-Public Use
  Company Number: US-009507513-1307USA013254

PATIENT
  Sex: Male

DRUGS (4)
  1. VICTRELIS [Suspect]
     Indication: HEPATITIS C
     Dosage: UNK
     Route: 048
     Dates: start: 20130629, end: 20131005
  2. REBETOL [Suspect]
     Indication: HEPATITIS C
     Dosage: UNK
     Route: 048
     Dates: start: 20130528, end: 2013
  3. REBETOL [Suspect]
     Dosage: ONCE A DAY
     Route: 048
     Dates: start: 2013, end: 20131005
  4. PEGASYS [Suspect]
     Indication: HEPATITIS C
     Dosage: UNK
     Dates: start: 20130528, end: 20131005

REACTIONS (23)
  - Blood potassium decreased [Unknown]
  - Pneumonia [Unknown]
  - Nasopharyngitis [Unknown]
  - Oropharyngeal pain [Unknown]
  - Cough [Unknown]
  - Dizziness [Unknown]
  - Blood electrolytes decreased [Unknown]
  - Feeling abnormal [Unknown]
  - Asthenia [Unknown]
  - Red blood cell count decreased [Unknown]
  - White blood cell count decreased [Unknown]
  - Rash [Unknown]
  - Dry skin [Unknown]
  - Chromaturia [Unknown]
  - Aphagia [Unknown]
  - Muscle spasms [Unknown]
  - Abdominal distension [Unknown]
  - Nausea [Unknown]
  - Abdominal discomfort [Unknown]
  - Local swelling [Unknown]
  - White blood cell count decreased [Unknown]
  - Joint swelling [Unknown]
  - Anaemia [Unknown]
